FAERS Safety Report 5840520-6 (Version None)
Quarter: 2008Q3

REPORT INFORMATION
  Report Type: 
  Country: None (occurrence: None)
  Receive Date: 20080807
  Receipt Date: 20080807
  Transmission Date: 20090109
  Serious: No
  Sender: FDA-Public Use
  Company Number: None

PATIENT
  Sex: Female
  Weight: 111.1313 kg

DRUGS (1)
  1. POLYETHYLENE GLYCOL 3350 AND ELECTOLYTES [Suspect]
     Indication: COLONOSCOPY
     Dosage: 8 OUNCE GLASS EVERY 15-20 MINUTE PO
     Route: 048
     Dates: start: 20080806, end: 20080806

REACTIONS (2)
  - PRURITUS [None]
  - URTICARIA [None]
